FAERS Safety Report 12956866 (Version 1)
Quarter: 2016Q4

REPORT INFORMATION
  Report Type: Spontaneous
  Country: US (occurrence: US)
  Receive Date: 20161118
  Receipt Date: 20161118
  Transmission Date: 20170207
  Serious: Yes (Other)
  Sender: FDA-Public Use
  Company Number: US-WARNER CHILCOTT, LLC-1059765

PATIENT
  Sex: Female
  Weight: 69.09 kg

DRUGS (1)
  1. LO LOESTRIN FE [Suspect]
     Active Substance: ETHINYL ESTRADIOL\NORETHINDRONE ACETATE
     Indication: CONTRACEPTION
     Route: 048
     Dates: start: 201607, end: 201608

REACTIONS (3)
  - Pregnancy on oral contraceptive [Unknown]
  - Maternal exposure timing unspecified [Unknown]
  - Drug ineffective [Unknown]
